FAERS Safety Report 25626153 (Version 6)
Quarter: 2025Q3

REPORT INFORMATION
  Report Type: Report from Study
  Country: US (occurrence: US)
  Receive Date: 20250731
  Receipt Date: 20250901
  Transmission Date: 20251021
  Serious: Yes (Other)
  Sender: ABBVIE
  Company Number: US-ABBVIE-6389824

PATIENT
  Age: 61 Year
  Sex: Female
  Weight: 83 kg

DRUGS (15)
  1. VYALEV [Suspect]
     Active Substance: FOSCARBIDOPA\FOSLEVODOPA
     Indication: Parkinson^s disease
     Route: 058
     Dates: start: 20241113
  2. VYALEV [Suspect]
     Active Substance: FOSCARBIDOPA\FOSLEVODOPA
     Route: 058
  3. HYDROXYZINE [Concomitant]
     Active Substance: HYDROXYZINE HYDROCHLORIDE
     Indication: Product used for unknown indication
  4. GABAPENTIN [Concomitant]
     Active Substance: GABAPENTIN
     Indication: Pain
  5. NUEDEXTA [Concomitant]
     Active Substance: DEXTROMETHORPHAN HYDROBROMIDE\QUINIDINE SULFATE
     Indication: Product used for unknown indication
     Route: 048
     Dates: start: 2022
  6. ONDANSETRON HYDROCHLORIDE [Concomitant]
     Active Substance: ONDANSETRON HYDROCHLORIDE
     Indication: Product used for unknown indication
  7. PAXLOVID [Concomitant]
     Active Substance: NIRMATRELVIR\RITONAVIR
     Indication: Product used for unknown indication
  8. PERCOCET [Concomitant]
     Active Substance: ACETAMINOPHEN\OXYCODONE HYDROCHLORIDE
     Indication: Product used for unknown indication
  9. SAXENDA [Concomitant]
     Active Substance: LIRAGLUTIDE
     Indication: Product used for unknown indication
  10. BUPROPION HYDROCHLORIDE XL [Concomitant]
     Active Substance: BUPROPION HYDROCHLORIDE
     Indication: Product used for unknown indication
     Route: 048
  11. CARBIDOPA LEVODOPA [Concomitant]
     Active Substance: CARBIDOPA\LEVODOPA
     Indication: Product used for unknown indication
  12. MUPIROCIN [Concomitant]
     Active Substance: MUPIROCIN
     Indication: Product used for unknown indication
     Dosage: TOPICAL OINTMENT
  13. HYDROCHLOROTHIAZIDE [Concomitant]
     Active Substance: HYDROCHLOROTHIAZIDE
     Indication: Product used for unknown indication
  14. HYDROXYZINE HYDROCHLORIDE [Concomitant]
     Active Substance: HYDROXYZINE HYDROCHLORIDE
     Indication: Product used for unknown indication
     Route: 048
  15. NEURONTIN [Concomitant]
     Active Substance: GABAPENTIN
     Indication: Product used for unknown indication

REACTIONS (11)
  - Fall [Recovered/Resolved with Sequelae]
  - Infusion site nodule [Not Recovered/Not Resolved]
  - Infusion site cellulitis [Recovered/Resolved]
  - Fatigue [Recovered/Resolved with Sequelae]
  - Infusion site cellulitis [Recovered/Resolved]
  - Rotator cuff syndrome [Unknown]
  - Infusion site cellulitis [Recovering/Resolving]
  - Tearfulness [Unknown]
  - Depression [Unknown]
  - Skin discolouration [Unknown]
  - Restlessness [Unknown]

NARRATIVE: CASE EVENT DATE: 20250709
